FAERS Safety Report 13130523 (Version 2)
Quarter: 2017Q1

REPORT INFORMATION
  Report Type: Spontaneous
  Country: JP (occurrence: JP)
  Receive Date: 20170119
  Receipt Date: 20170130
  Transmission Date: 20170428
  Serious: Yes (Other)
  Sender: FDA-Public Use
  Company Number: US-ASTRAZENECA-2017SE05322

PATIENT
  Age: 79 Year
  Sex: Female
  Weight: 47.4 kg

DRUGS (3)
  1. CIBENZOLINE SUCCINATE [Concomitant]
     Active Substance: CIFENLINE SUCCINATE
     Route: 048
  2. DILTIAZEM HYDROCHLORIDE. [Concomitant]
     Active Substance: DILTIAZEM HYDROCHLORIDE
     Dosage: 90.0MG UNKNOWN
     Route: 048
  3. CANDESARTAN CILEXETIL. [Suspect]
     Active Substance: CANDESARTAN CILEXETIL
     Indication: HYPERTENSION
     Dosage: 8.0MG UNKNOWN
     Route: 048

REACTIONS (3)
  - Asthenia [Unknown]
  - Suffocation feeling [Unknown]
  - Depressed level of consciousness [Unknown]
